FAERS Safety Report 13815486 (Version 1)
Quarter: 2017Q3

REPORT INFORMATION
  Report Type: Spontaneous
  Country: US (occurrence: US)
  Receive Date: 20170731
  Receipt Date: 20170731
  Transmission Date: 20171127
  Serious: No
  Sender: FDA-Public Use
  Company Number: None

PATIENT
  Age: 25 Year
  Sex: Male
  Weight: 65.25 kg

DRUGS (1)
  1. SCOPOLAMINE [Suspect]
     Active Substance: SCOPOLAMINE
     Indication: MOTION SICKNESS
     Dosage: ?          OTHER FREQUENCY:1 PATCH FOR 3DAYS;?
     Route: 062

REACTIONS (4)
  - Nausea [None]
  - Polydipsia [None]
  - Presyncope [None]
  - Dizziness [None]

NARRATIVE: CASE EVENT DATE: 20170717
